FAERS Safety Report 17174709 (Version 1)
Quarter: 2019Q4

REPORT INFORMATION
  Report Type: Spontaneous
  Country: US (occurrence: US)
  Receive Date: 20191219
  Receipt Date: 20191219
  Transmission Date: 20200122
  Serious: No
  Sender: FDA-Public Use
  Company Number: US-UCBSA-121844

PATIENT
  Sex: Male

DRUGS (13)
  1. ATENOLOL. [Concomitant]
     Active Substance: ATENOLOL
  2. PRAVASTATIN. [Concomitant]
     Active Substance: PRAVASTATIN
  3. CIMZIA [Suspect]
     Active Substance: CERTOLIZUMAB PEGOL
     Indication: PSORIATIC ARTHROPATHY
     Dosage: 400 MG, EV 4 WEEKS
     Dates: start: 201403
  4. SULFASALAZINE. [Concomitant]
     Active Substance: SULFASALAZINE
  5. VITAMIN B12 [Concomitant]
     Active Substance: CYANOCOBALAMIN
  6. OMEGA 3 [Concomitant]
     Active Substance: OMEGA-3 FATTY ACIDS
  7. OMEPRAZOLE. [Concomitant]
     Active Substance: OMEPRAZOLE
  8. METHYL PREDNISONE [Concomitant]
     Indication: DERMATITIS
  9. FENOFIBRATE. [Concomitant]
     Active Substance: FENOFIBRATE
  10. LISINOPRIL. [Concomitant]
     Active Substance: LISINOPRIL
  11. FOLIC ACID. [Concomitant]
     Active Substance: FOLIC ACID
  12. CENTRUM VITAMIN [Concomitant]
  13. METFORMIN [Concomitant]
     Active Substance: METFORMIN HYDROCHLORIDE

REACTIONS (3)
  - Muscle spasms [Unknown]
  - Psoriatic arthropathy [Unknown]
  - Pain in extremity [Unknown]

NARRATIVE: CASE EVENT DATE: 2014
